FAERS Safety Report 11392372 (Version 4)
Quarter: 2015Q4

REPORT INFORMATION
  Report Type: Spontaneous
  Country: AU (occurrence: AU)
  Receive Date: 20150818
  Receipt Date: 20151223
  Transmission Date: 20160304
  Serious: Yes (Hospitalization, Other)
  Sender: FDA-Public Use
  Company Number: AU-AMGEN-AUSSP2015063048

PATIENT
  Age: 91 Year
  Sex: Female
  Weight: 49 kg

DRUGS (10)
  1. TICAGRELOR [Concomitant]
     Active Substance: TICAGRELOR
     Dosage: 180 MG, DAILY
     Dates: start: 20150423
  2. TOLVAPTAN [Concomitant]
     Active Substance: TOLVAPTAN
     Indication: HYPONATRAEMIA
     Dosage: 15 MG, DAILY
     Dates: start: 20150515
  3. CORALAN [Suspect]
     Active Substance: IVABRADINE HYDROCHLORIDE
     Indication: CARDIAC FAILURE
     Dosage: 5 MG, QD
     Route: 048
     Dates: start: 20150423, end: 20150617
  4. PERINDOPRIL [Concomitant]
     Active Substance: PERINDOPRIL
     Dosage: 1.25 MG, DAILY
     Dates: start: 20150423
  5. OMEPRAZOLE. [Concomitant]
     Active Substance: OMEPRAZOLE
     Dosage: 20 MG, DAILY
     Dates: start: 20150423
  6. CALTRATE WITH VITAMIN D [Concomitant]
     Active Substance: CALCIUM CARBONATE\CHOLECALCIFEROL
     Dosage: UNK
     Dates: start: 20150423
  7. ASPIRIN                            /00002701/ [Concomitant]
     Active Substance: ASPIRIN
     Dosage: 100 MG, DAILY
     Dates: start: 20150423
  8. AMITRIPTYLINE [Concomitant]
     Active Substance: AMITRIPTYLINE
     Dosage: 25 MG, DAILY
     Dates: start: 20150423
  9. ROSUVASTATIN [Concomitant]
     Active Substance: ROSUVASTATIN
     Dosage: 5 MG, DAILY
     Dates: start: 20150423
  10. NEBILET [Concomitant]
     Active Substance: NEBIVOLOL
     Dosage: 10 MG, DAILY
     Dates: start: 20150423

REACTIONS (10)
  - Troponin increased [Unknown]
  - Pulmonary hypertension [Unknown]
  - Myocardial infarction [Unknown]
  - Blood glucose increased [Unknown]
  - Dyspnoea [Unknown]
  - Glomerular filtration rate decreased [Unknown]
  - Fatigue [Unknown]
  - Sinus arrest [Recovered/Resolved]
  - Atrial fibrillation [Recovered/Resolved]
  - Blood iron decreased [Unknown]

NARRATIVE: CASE EVENT DATE: 20140627
